FAERS Safety Report 9129746 (Version 1)
Quarter: 2013Q1

REPORT INFORMATION
  Report Type: Spontaneous
  Country: US (occurrence: US)
  Receive Date: 20130125
  Receipt Date: 20130125
  Transmission Date: 20140127
  Serious: Yes (Other)
  Sender: FDA-Public Use
  Company Number: US-TARO-2013P1001030

PATIENT
  Age: 57 Year
  Sex: Female

DRUGS (4)
  1. CETIRIZINE [Suspect]
     Indication: URTICARIA CHRONIC
  2. FEXOFENADINE [Concomitant]
  3. RANITIDINE [Concomitant]
  4. UNSPECIFIED CORTICOSTEROID [Concomitant]

REACTIONS (1)
  - Hepatotoxicity [Recovered/Resolved]
